FAERS Safety Report 6226796-4 (Version None)
Quarter: 2009Q2

REPORT INFORMATION
  Report Type: 
  Country: None (occurrence: None)
  Receive Date: 20090612
  Receipt Date: 20090521
  Transmission Date: 20091009
  Serious: Yes (Hospitalization)
  Sender: FDA-Public Use
  Company Number: US-ABBOTT-09P-163-0575412-00

PATIENT
  Sex: Female
  Weight: 93.978 kg

DRUGS (10)
  1. HUMIRA [Suspect]
     Indication: PSORIATIC ARTHROPATHY
     Route: 058
     Dates: start: 20080903
  2. METHOTREXATE [Concomitant]
     Indication: PSORIATIC ARTHROPATHY
     Route: 048
  3. AMARYL [Concomitant]
     Indication: DRUG USE FOR UNKNOWN INDICATION
  4. LOPRESSOR [Concomitant]
     Indication: DRUG USE FOR UNKNOWN INDICATION
  5. COZAAR [Concomitant]
     Indication: DRUG USE FOR UNKNOWN INDICATION
  6. NEURONTIN [Concomitant]
     Indication: DRUG USE FOR UNKNOWN INDICATION
  7. SPIRONOLACTONE [Concomitant]
     Indication: DRUG USE FOR UNKNOWN INDICATION
  8. POTASSIUM CHLORIDE [Concomitant]
     Indication: DRUG USE FOR UNKNOWN INDICATION
  9. PRILOSEC [Concomitant]
     Indication: DRUG USE FOR UNKNOWN INDICATION
  10. PREDNISONE [Concomitant]
     Indication: DRUG USE FOR UNKNOWN INDICATION

REACTIONS (11)
  - ABDOMINAL PAIN [None]
  - CHEST PAIN [None]
  - DIARRHOEA [None]
  - FALL [None]
  - FOOD POISONING [None]
  - HEART RATE IRREGULAR [None]
  - INCREASED UPPER AIRWAY SECRETION [None]
  - JOINT SWELLING [None]
  - NAUSEA [None]
  - PHARYNGEAL ERYTHEMA [None]
  - VIRAL INFECTION [None]
